FAERS Safety Report 7609954-3 (Version None)
Quarter: 2011Q3

REPORT INFORMATION
  Report Type: 
  Country: None (occurrence: None)
  Receive Date: 20110714
  Receipt Date: 20101220
  Transmission Date: 20111222
  Serious: No
  Sender: FDA-Public Use
  Company Number: US-TYCO HEALTHCARE/MALLINCKRODT-T201002377

PATIENT
  Age: 54 Year
  Sex: Female

DRUGS (4)
  1. ASPIRIN [Concomitant]
     Dosage: 2 TABS IN AM
     Route: 048
  2. BENADRYL [Concomitant]
     Dosage: 2 TABS AT NIGHT
     Route: 048
  3. OXYCODONE HCL [Suspect]
     Indication: PAIN
     Dosage: 1/2 TABLET Q 4HRS; 1 TAB BEFORE EXERCISE
     Route: 048
     Dates: start: 20101119, end: 20101101
  4. OXYCODONE HCL [Suspect]
     Dosage: 1/2 TABLET Q 4HRS; 1 TAB BEFORE EXERCISE
     Dates: start: 20101201

REACTIONS (13)
  - URINARY TRACT INFECTION [None]
  - MALAISE [None]
  - ABDOMINAL PAIN UPPER [None]
  - HEADACHE [None]
  - URINE OUTPUT DECREASED [None]
  - BACK PAIN [None]
  - TREMOR [None]
  - FLATULENCE [None]
  - PAIN IN JAW [None]
  - ASTHENIA [None]
  - NERVOUSNESS [None]
  - DRUG INEFFECTIVE [None]
  - PAIN IN EXTREMITY [None]
